FAERS Safety Report 5098266-0 (Version None)
Quarter: 2006Q3

REPORT INFORMATION
  Report Type: 
  Country: None (occurrence: None)
  Receive Date: 20060906
  Receipt Date: 20060719
  Transmission Date: 20061208
  Serious: Yes (Death, Hospitalization, Other)
  Sender: FDA-Public Use
  Company Number: US-AMGEN-US187085

PATIENT
  Sex: Male

DRUGS (13)
  1. ENBREL [Suspect]
     Indication: RHEUMATOID ARTHRITIS
     Route: 058
     Dates: start: 19991006, end: 20051121
  2. REMICADE [Concomitant]
  3. METHOTREXATE [Concomitant]
  4. PREDNISONE TAB [Concomitant]
  5. CLONAZEPAM [Concomitant]
  6. ACTONEL [Concomitant]
  7. BUSPIRONE HCL [Concomitant]
  8. PREVACID [Concomitant]
  9. LISINOPRIL [Concomitant]
  10. TRAZODONE HCL [Concomitant]
  11. COUMADIN [Concomitant]
     Dates: start: 20050501
  12. Z BETA [Concomitant]
  13. OXYCOCET [Concomitant]

REACTIONS (11)
  - ABDOMINAL PAIN [None]
  - ATRIAL FLUTTER [None]
  - CHRONIC OBSTRUCTIVE PULMONARY DISEASE [None]
  - CONGESTIVE CARDIOMYOPATHY [None]
  - CORONARY ARTERY DISEASE [None]
  - LARGE CELL LUNG CANCER STAGE IV [None]
  - LUNG ADENOCARCINOMA [None]
  - MYELOPROLIFERATIVE DISORDER [None]
  - OSTEOARTHRITIS [None]
  - SEROMA [None]
  - VENTRICULAR TACHYCARDIA [None]
